FAERS Safety Report 10567296 (Version 2)
Quarter: 2014Q4

REPORT INFORMATION
  Report Type: Spontaneous
  Country: JP (occurrence: JP)
  Receive Date: 20141106
  Receipt Date: 20141114
  Transmission Date: 20150529
  Serious: No
  Sender: FDA-Public Use
  Company Number: JP-MERCK-1411JPN000127

PATIENT
  Age: 5 Year
  Sex: Male

DRUGS (7)
  1. FLUNASE (FLUTICASONE PROPIONATE) [Concomitant]
     Dosage: UNK
     Route: 045
  2. ALESION [Concomitant]
     Active Substance: EPINASTINE HYDROCHLORIDE
     Dosage: 0.9 G, QD
     Route: 048
     Dates: start: 20140927, end: 20140928
  3. MUCODYNE [Concomitant]
     Active Substance: CARBOCYSTEINE
     Dosage: 500 MG, QD
     Route: 048
     Dates: start: 20140927, end: 20140928
  4. MONTELUKAST [Suspect]
     Active Substance: MONTELUKAST SODIUM
     Indication: ASTHMA
     Dosage: 4 MG, QD
     Route: 048
     Dates: start: 20140927, end: 20140928
  5. PREDONINE [Concomitant]
     Active Substance: PREDNISOLONE\PREDNISOLONE ACETATE\PREDNISOLONE SODIUM SUCCINATE
     Dosage: 3 MG, QD
     Route: 048
  6. ASVERIN (TIPEPIDINE HIBENZATE) [Concomitant]
     Active Substance: TIPEPIDINE HIBENZATE
     Dosage: 20 MG, QD
     Route: 048
     Dates: start: 20140927, end: 20140928
  7. MUCOSAL [Concomitant]
     Dosage: 15 MG, QD
     Route: 048
     Dates: start: 20140927, end: 20140928

REACTIONS (1)
  - Malaise [Recovered/Resolved]

NARRATIVE: CASE EVENT DATE: 20140928
